FAERS Safety Report 8277648-X (Version None)
Quarter: 2012Q2

REPORT INFORMATION
  Report Type: 
  Country: None (occurrence: None)
  Receive Date: 20120412
  Receipt Date: 20120406
  Transmission Date: 20120825
  Serious: Yes (Other)
  Sender: FDA-Public Use
  Company Number: US-PFIZER INC-2012087536

PATIENT
  Sex: Female

DRUGS (2)
  1. TAMSULOSIN HYDROCHLORIDE [Suspect]
     Dosage: UNK
  2. TOVIAZ [Suspect]
     Indication: HYPERTONIC BLADDER
     Dosage: UNK
     Route: 048

REACTIONS (3)
  - DYSURIA [None]
  - CONSTIPATION [None]
  - DRUG INEFFECTIVE [None]
